FAERS Safety Report 11839859 (Version 1)
Quarter: 2015Q4

REPORT INFORMATION
  Report Type: Spontaneous
  Country: US (occurrence: None)
  Receive Date: 20151215
  Receipt Date: 20151215
  Transmission Date: 20160305
  Serious: Yes (Other)
  Sender: FDA-Public Use
  Company Number: None

PATIENT
  Age: 38 Year
  Sex: Male
  Weight: 83.92 kg

DRUGS (4)
  1. MULTI VITAMIN [Concomitant]
     Active Substance: VITAMINS
  2. DULERA [Concomitant]
     Active Substance: FORMOTEROL FUMARATE DIHYDRATE\MOMETASONE FUROATE
  3. FISH OIL OMEGA 3 CONCENTRATE [Concomitant]
     Active Substance: FISH OIL
  4. NORCO 5-325 ACTAVIS GENERIC [Suspect]
     Active Substance: ACETAMINOPHEN\HYDROCODONE BITARTRATE
     Indication: PAIN
     Dosage: 1 PILL
     Route: 048
     Dates: end: 20151212

REACTIONS (3)
  - Vomiting [None]
  - Nausea [None]
  - Drug interaction [None]

NARRATIVE: CASE EVENT DATE: 20151212
